FAERS Safety Report 20655965 (Version 1)
Quarter: 2022Q1

REPORT INFORMATION
  Report Type: Spontaneous
  Country: FR (occurrence: FR)
  Receive Date: 20220330
  Receipt Date: 20220330
  Transmission Date: 20220423
  Serious: Yes (Other)
  Sender: FDA-Public Use
  Company Number: FR-LFBP-2022000061

PATIENT
  Age: 21 Month
  Sex: Male

DRUGS (2)
  1. ANTIHEMOPHILIC FACTOR HUMAN [Suspect]
     Active Substance: ANTIHEMOPHILIC FACTOR HUMAN
     Indication: Immune tolerance induction
     Dosage: 50 INTERNATIONAL UNIT/KILOGRAM, 1/WEEK
     Route: 042
  2. ANTIHEMOPHILIC FACTOR HUMAN [Suspect]
     Active Substance: ANTIHEMOPHILIC FACTOR HUMAN
     Indication: Factor VIII deficiency
     Dosage: 30 INTERNATIONAL UNIT/KILOGRAM, Q2WEEKS
     Route: 042

REACTIONS (3)
  - Anti factor VIII antibody positive [Recovering/Resolving]
  - Drug ineffective [Recovering/Resolving]
  - Product use issue [Recovering/Resolving]
